FAERS Safety Report 8556464-5 (Version None)
Quarter: 2012Q3

REPORT INFORMATION
  Report Type: 
  Country: None (occurrence: None)
  Receive Date: 20120801
  Receipt Date: 20120730
  Transmission Date: 20120928
  Serious: Yes (Hospitalization, Other)
  Sender: FDA-Public Use
  Company Number: PHEH2007US04455

PATIENT
  Sex: Female
  Weight: 86.621 kg

DRUGS (33)
  1. DICLOFENAC SODIUM [Concomitant]
     Dosage: 50 MG, BID
     Route: 048
  2. DEXAMETHASONE [Concomitant]
     Dosage: 4 MG, TID
     Route: 048
     Dates: start: 20090109
  3. ZOCOR [Concomitant]
  4. VICODIN [Concomitant]
  5. ENALAPRIL MALEATE [Concomitant]
  6. ARIMIDEX [Concomitant]
  7. ZYRTEC [Concomitant]
  8. OXYCONTIN [Concomitant]
  9. EFFEXOR [Concomitant]
  10. AREDIA [Suspect]
     Indication: METASTASES TO BONE
     Route: 042
  11. ACETAMINOPHEN PM [Concomitant]
  12. POTASSIUM [Concomitant]
  13. LASIX [Concomitant]
  14. ANTIBIOTICS [Suspect]
  15. LIPITOR [Concomitant]
  16. ZOMETA [Suspect]
     Indication: BREAST CANCER
     Route: 042
  17. EFFEXOR XR [Concomitant]
  18. AMITRIPTLINE HYDROCHLORIDE TAB [Concomitant]
  19. TYLENOL PM [Concomitant]
  20. PERCOCET [Concomitant]
  21. AMOXICILLIN [Concomitant]
  22. SYNTHROID [Concomitant]
  23. CELEBREX [Concomitant]
  24. ASPIRIN [Concomitant]
  25. TAXOTERE [Concomitant]
  26. COUMADIN [Concomitant]
  27. NEXIUM [Concomitant]
  28. ATENOLOL [Concomitant]
  29. CALCIUM WITH VITAMIN D [Concomitant]
  30. MULTI-VITAMINS [Concomitant]
     Dosage: 1 DF, QD
  31. DEXAMETHASONE [Concomitant]
     Dosage: 4 MG, BID
     Dates: start: 20090114
  32. ZOFRAN [Concomitant]
     Route: 042
  33. TORADOL [Concomitant]

REACTIONS (86)
  - SEPSIS [None]
  - HYPOKALAEMIA [None]
  - OSTEONECROSIS OF JAW [None]
  - PERIODONTITIS [None]
  - PAIN [None]
  - BONE DISORDER [None]
  - SWELLING FACE [None]
  - ABSCESS [None]
  - PARAESTHESIA ORAL [None]
  - MASS [None]
  - BRONCHITIS [None]
  - BACK PAIN [None]
  - HEADACHE [None]
  - CHEST PAIN [None]
  - INSOMNIA [None]
  - DIABETES MELLITUS [None]
  - GINGIVAL DISORDER [None]
  - ANXIETY [None]
  - HYPOPHAGIA [None]
  - OSTEOMYELITIS [None]
  - BONE FRAGMENTATION [None]
  - OSTEOPOROSIS [None]
  - PERONEAL NERVE PALSY [None]
  - IRON DEFICIENCY ANAEMIA [None]
  - URINARY TRACT INFECTION [None]
  - WEIGHT DECREASED [None]
  - POSTMENOPAUSAL HAEMORRHAGE [None]
  - MENTAL STATUS CHANGES [None]
  - STAPHYLOCOCCAL INFECTION [None]
  - DEHYDRATION [None]
  - GASTROOESOPHAGEAL REFLUX DISEASE [None]
  - OVARIAN MASS [None]
  - CHOLELITHIASIS [None]
  - CONJUNCTIVITIS [None]
  - ATELECTASIS [None]
  - EATING DISORDER [None]
  - DIABETIC FOOT [None]
  - MUCOSAL INFLAMMATION [None]
  - OSTEOMALACIA [None]
  - HAEMORRHAGE [None]
  - PYREXIA [None]
  - JOINT EFFUSION [None]
  - TINEA PEDIS [None]
  - HOT FLUSH [None]
  - INFECTION [None]
  - GENERAL PHYSICAL HEALTH DETERIORATION [None]
  - JAW DISORDER [None]
  - ORAL PAIN [None]
  - ANAEMIA [None]
  - SPINAL FRACTURE [None]
  - OSTEOARTHRITIS [None]
  - SYNOVITIS [None]
  - METASTASES TO MENINGES [None]
  - URINARY INCONTINENCE [None]
  - ASTHMA [None]
  - ONYCHOMYCOSIS [None]
  - PANCYTOPENIA [None]
  - TOOTH FRACTURE [None]
  - COLITIS [None]
  - LYMPH GLAND INFECTION [None]
  - ENTHESOPATHY [None]
  - CELLULITIS [None]
  - OESOPHAGEAL DISORDER [None]
  - IMPAIRED HEALING [None]
  - SCIATICA [None]
  - MUSCULAR WEAKNESS [None]
  - CANDIDIASIS [None]
  - LUMBAR RADICULOPATHY [None]
  - SPINAL OSTEOARTHRITIS [None]
  - PAIN IN EXTREMITY [None]
  - CATARACT [None]
  - COMPRESSION FRACTURE [None]
  - ARRHYTHMIA [None]
  - LUNG NEOPLASM [None]
  - DECREASED APPETITE [None]
  - DIZZINESS [None]
  - DYSPNOEA EXERTIONAL [None]
  - DEFORMITY [None]
  - EMOTIONAL DISTRESS [None]
  - PRIMARY SEQUESTRUM [None]
  - DIPLOPIA [None]
  - KYPHOSIS [None]
  - DYSURIA [None]
  - ARTHRALGIA [None]
  - HYPERCHOLESTEROLAEMIA [None]
  - DIARRHOEA [None]
